FAERS Safety Report 25135958 (Version 1)
Quarter: 2025Q1

REPORT INFORMATION
  Report Type: Spontaneous
  Country: IE (occurrence: GB)
  Receive Date: 20250328
  Receipt Date: 20250328
  Transmission Date: 20250409
  Serious: Yes (Hospitalization, Other)
  Sender: OTSUKA
  Company Number: IE-MYLANLABS-2025M1012605

PATIENT
  Sex: Female

DRUGS (2)
  1. ARIPIPRAZOLE [Suspect]
     Active Substance: ARIPIPRAZOLE
     Indication: Schizophrenia
     Route: 065
  2. CLOZARIL [Suspect]
     Active Substance: CLOZAPINE
     Indication: Schizophrenia
     Route: 048
     Dates: start: 20220624

REACTIONS (4)
  - Upper gastrointestinal haemorrhage [Unknown]
  - Neutrophilia [Unknown]
  - Leukocytosis [Unknown]
  - Off label use [Unknown]
